FAERS Safety Report 10617715 (Version 1)
Quarter: 2014Q4

REPORT INFORMATION
  Report Type: Spontaneous
  Country: US (occurrence: US)
  Receive Date: 20141201
  Receipt Date: 20141201
  Transmission Date: 20150529
  Serious: Yes (Other)
  Sender: FDA-Public Use
  Company Number: US-GLAXOSMITHKLINE-US2014026155

PATIENT
  Age: 51 Year
  Sex: Female

DRUGS (3)
  1. NICODERM CQ [Suspect]
     Active Substance: NICOTINE
     Indication: SMOKING CESSATION THERAPY
     Dosage: 21 MG, UNK
     Route: 062
     Dates: start: 201409
  2. STEROIDS [Concomitant]
     Active Substance: UNSPECIFIED INGREDIENT
  3. LEVAQUIN [Concomitant]
     Active Substance: LEVOFLOXACIN

REACTIONS (3)
  - Sweating fever [Not Recovered/Not Resolved]
  - Hot flush [Not Recovered/Not Resolved]
  - Hyperhidrosis [Not Recovered/Not Resolved]
